FAERS Safety Report 10084172 (Version 2)
Quarter: 2014Q2

REPORT INFORMATION
  Report Type: Spontaneous
  Country: FR (occurrence: FR)
  Receive Date: 20140417
  Receipt Date: 20140501
  Transmission Date: 20141212
  Serious: Yes (Other)
  Sender: FDA-Public Use
  Company Number: FR-PFIZER INC-2014103601

PATIENT
  Age: 14 Year
  Sex: Male

DRUGS (2)
  1. BENZATHINE BENZYLPENICILLIN [Suspect]
     Indication: RHEUMATIC FEVER
     Dosage: 2.4 MILLIONIU, EVERY 15 DAYS
     Route: 030
  2. LIDOCAINE HCL [Suspect]
     Indication: RHEUMATIC FEVER
     Dosage: 0.5 ML, EVERY 15 DAYS
     Route: 030

REACTIONS (5)
  - Embolia cutis medicamentosa [Recovering/Resolving]
  - Rhabdomyolysis [Recovering/Resolving]
  - Testicular torsion [Recovering/Resolving]
  - Monoparesis [Recovering/Resolving]
  - Hypoaesthesia [Not Recovered/Not Resolved]
